FAERS Safety Report 5770533-4 (Version None)
Quarter: 2008Q2

REPORT INFORMATION
  Report Type: 
  Country: None (occurrence: None)
  Receive Date: 20080613
  Receipt Date: 20080506
  Transmission Date: 20081010
  Serious: No
  Sender: FDA-Public Use
  Company Number: US-ABBOTT-08P-163-0450678-00

PATIENT
  Sex: Female
  Weight: 86.26 kg

DRUGS (1)
  1. HUMIRA [Suspect]
     Indication: RHEUMATOID ARTHRITIS
     Route: 058
     Dates: start: 20070101, end: 20080506

REACTIONS (6)
  - COUGH [None]
  - HEADACHE [None]
  - NASOPHARYNGITIS [None]
  - PAIN [None]
  - PYREXIA [None]
  - RESPIRATORY TRACT CONGESTION [None]
